FAERS Safety Report 20659702 (Version 3)
Quarter: 2022Q2

REPORT INFORMATION
  Report Type: Spontaneous
  Country: DE (occurrence: DE)
  Receive Date: 20220331
  Receipt Date: 20220425
  Transmission Date: 20220720
  Serious: Yes (Hospitalization, Other)
  Sender: FDA-Public Use
  Company Number: DE-PFIZER INC-202200473936

PATIENT
  Age: 82 Year
  Sex: Male
  Weight: 80 kg

DRUGS (12)
  1. DALTEPARIN SODIUM [Suspect]
     Active Substance: DALTEPARIN SODIUM
     Indication: Vascular operation
     Dosage: 1 DF, 1X/DAY
     Dates: start: 20210430, end: 20210503
  2. DALTEPARIN SODIUM [Suspect]
     Active Substance: DALTEPARIN SODIUM
     Indication: Thrombosis
  3. ASPIRIN [Concomitant]
     Active Substance: ASPIRIN
     Indication: Hypertension
     Dosage: 1 DF, 1X/DAY
  4. ASPIRIN [Concomitant]
     Active Substance: ASPIRIN
     Indication: Anticoagulant therapy
  5. CLOPIDOGREL [Concomitant]
     Active Substance: CLOPIDOGREL BISULFATE
     Indication: Hypertension
     Dosage: 1 DF, 1X/DAY  (ON TUESDAYS, THURSDAYS AND SATURDAYS)
  6. CLOPIDOGREL [Concomitant]
     Active Substance: CLOPIDOGREL BISULFATE
     Indication: Anticoagulant therapy
  7. CARVEDILOL [Concomitant]
     Active Substance: CARVEDILOL
     Indication: Hypertension
     Dosage: 1 DF, 1X/DAY
  8. RAMIPRIL [Concomitant]
     Active Substance: RAMIPRIL
     Indication: Hypertension
     Dosage: 1 DF, 1X/DAY
  9. PENTAERYTHRITOL TETRANITRATE [Concomitant]
     Active Substance: PENTAERYTHRITOL TETRANITRATE
     Indication: Cardiovascular disorder
     Dosage: 1.5 DF, DAILY
  10. JODETTEN [Concomitant]
     Indication: Iodine deficiency
     Dosage: 1 DF, 1X/DAY
  11. FLUVASTATIN [FLUVASTATIN SODIUM] [Concomitant]
     Indication: Hypercholesterolaemia
     Dosage: 1 DF, 1X/DAY
  12. EZETIMIBE [Concomitant]
     Active Substance: EZETIMIBE
     Indication: Blood cholesterol increased
     Dosage: 0.5 DF, 1X/DAY

REACTIONS (7)
  - Circulatory collapse [Unknown]
  - Hypertension [Unknown]
  - Pulmonary oedema [Unknown]
  - Feeling cold [Unknown]
  - Hyperhidrosis [Unknown]
  - Malaise [Unknown]
  - Dyspnoea [Not Recovered/Not Resolved]
